FAERS Safety Report 6484604-0 (Version None)
Quarter: 2009Q4

REPORT INFORMATION
  Report Type: 
  Country: None (occurrence: None)
  Receive Date: 20091209
  Receipt Date: 20080320
  Transmission Date: 20100525
  Serious: Yes (Other)
  Sender: FDA-Public Use
  Company Number: CA-ABBOTT-09P-028-0612969-00

PATIENT
  Sex: Male
  Weight: 81 kg

DRUGS (2)
  1. MAVIK [Suspect]
     Indication: DRUG USE FOR UNKNOWN INDICATION
     Route: 048
  2. MAVIK [Suspect]
     Route: 048
     Dates: end: 20080605

REACTIONS (2)
  - TONSIL CANCER [None]
  - WEIGHT DECREASED [None]
